FAERS Safety Report 13358764 (Version 4)
Quarter: 2018Q1

REPORT INFORMATION
  Report Type: Spontaneous
  Country: US (occurrence: US)
  Receive Date: 20170322
  Receipt Date: 20180105
  Transmission Date: 20180508
  Serious: Yes (Hospitalization, Other)
  Sender: FDA-Public Use
  Company Number: US-PFIZER INC-2017118478

PATIENT
  Age: 73 Year
  Sex: Female

DRUGS (8)
  1. CARFILZOMIB [Suspect]
     Active Substance: CARFILZOMIB
     Indication: PLASMA CELL MYELOMA
     Dosage: UNK, CYCLIC, (THREE CYCLES)
  2. CYCLOPHOSPHAMIDE. [Suspect]
     Active Substance: CYCLOPHOSPHAMIDE
     Indication: PLASMA CELL MYELOMA
     Dosage: UNK, CYCLIC (THREE CYCLES)
  3. LENALIDOMIDE [Suspect]
     Active Substance: LENALIDOMIDE
     Indication: PLASMA CELL MYELOMA
     Dosage: UNK, CYCLIC, (TWO CYCLES)
  4. PREDNISONE. [Suspect]
     Active Substance: PREDNISONE
     Indication: PLASMA CELL MYELOMA
     Dosage: UNK, CYCLIC, (THREE CYCLES)
  5. VINCRISTINE SULFATE. [Suspect]
     Active Substance: VINCRISTINE SULFATE
     Indication: PLASMA CELL MYELOMA
     Dosage: UNK, CYCLIC (THREE CYCLES)
  6. CARMUSTINE [Suspect]
     Active Substance: CARMUSTINE
     Indication: PLASMA CELL MYELOMA
     Dosage: UNK, CYCLIC, (THREE CYCLES)
  7. MELPHALAN. [Suspect]
     Active Substance: MELPHALAN
     Indication: PLASMA CELL MYELOMA
     Dosage: UNK, CYCLIC
  8. DEXAMETHASONE. [Suspect]
     Active Substance: DEXAMETHASONE
     Indication: PLASMA CELL MYELOMA
     Dosage: UNK, CYCLIC (TWO CYCLES)

REACTIONS (2)
  - Urinary tract infection bacterial [Recovered/Resolved]
  - Immunosuppression [Unknown]
